FAERS Safety Report 8439970-3 (Version None)
Quarter: 2012Q2

REPORT INFORMATION
  Report Type: 
  Country: None (occurrence: None)
  Receive Date: 20120615
  Receipt Date: 20120606
  Transmission Date: 20120825
  Serious: No
  Sender: FDA-Public Use
  Company Number: CA-TEVA-343109USA

PATIENT
  Sex: Female

DRUGS (1)
  1. COPAXONE [Suspect]
     Indication: MULTIPLE SCLEROSIS
     Dates: start: 20100101

REACTIONS (4)
  - MUSCLE SPASTICITY [None]
  - MEMORY IMPAIRMENT [None]
  - BALANCE DISORDER [None]
  - FEELING ABNORMAL [None]
